FAERS Safety Report 12640414 (Version 2)
Quarter: 2016Q3

REPORT INFORMATION
  Report Type: Spontaneous
  Country: FR (occurrence: FR)
  Receive Date: 20160810
  Receipt Date: 20160818
  Transmission Date: 20161109
  Serious: Yes (Hospitalization)
  Sender: FDA-Public Use
  Company Number: FR-ROCHE-1806441

PATIENT
  Age: 71 Year
  Sex: Male

DRUGS (10)
  1. KARDEGIC [Concomitant]
     Active Substance: ASPIRIN LYSINE
  2. SIMVASTATINE [Suspect]
     Active Substance: SIMVASTATIN
     Indication: DYSLIPIDAEMIA
     Route: 048
     Dates: start: 201605
  3. ZELBORAF [Concomitant]
     Active Substance: VEMURAFENIB
     Dosage: 2 TABLETS MORNING AND EVENING
     Route: 048
     Dates: start: 201601
  4. HEMI-DAONIL [Concomitant]
     Active Substance: GLYBURIDE
  5. INEXIUM [Concomitant]
     Active Substance: ESOMEPRAZOLE
  6. JOSIR [Concomitant]
     Active Substance: TAMSULOSIN
  7. LASILIX [Concomitant]
     Active Substance: FUROSEMIDE
  8. COTELLIC [Suspect]
     Active Substance: COBIMETINIB
     Indication: ERDHEIM-CHESTER DISEASE
     Route: 048
     Dates: start: 20160521, end: 20160708
  9. BISOCE [Concomitant]
     Active Substance: BISOPROLOL
  10. TRIATEC (FRANCE) [Concomitant]
     Active Substance: RAMIPRIL

REACTIONS (6)
  - Blood creatine phosphokinase increased [Recovering/Resolving]
  - Rhabdomyolysis [Recovering/Resolving]
  - Product use issue [Unknown]
  - Diarrhoea [Recovered/Resolved]
  - Off label use [Unknown]
  - Blood creatinine increased [Recovered/Resolved]

NARRATIVE: CASE EVENT DATE: 20160708
